FAERS Safety Report 5428600-0 (Version None)
Quarter: 2007Q3

REPORT INFORMATION
  Report Type: 
  Country: None (occurrence: None)
  Receive Date: 20070731
  Receipt Date: 20070615
  Transmission Date: 20080115
  Serious: No
  Sender: FDA-Public Use
  Company Number: US200705007747

PATIENT
  Age: 52 Year
  Sex: Male
  Weight: 149.7 kg

DRUGS (6)
  1. BYETTA [Suspect]
     Indication: TYPE 2 DIABETES MELLITUS
     Dosage: 5 UG, 2/D, SUBCUTANEOUS
     Route: 058
     Dates: start: 20070517, end: 20070529
  2. BYETTA [Suspect]
     Indication: TYPE 2 DIABETES MELLITUS
     Dosage: 5 UG, 2/D, SUBCUTANEOUS
     Route: 058
     Dates: start: 20070604
  3. EXENATIDE 5MCG PEN, DISPOSABLE DEVICE (EXENATIDE PEN (5 MCG)) PEN, DIS [Concomitant]
  4. ZYRTEC-D 12 HOUR [Concomitant]
  5. AVANDIA [Concomitant]
  6. LIPITOR [Concomitant]

REACTIONS (4)
  - PRURITUS GENERALISED [None]
  - RASH GENERALISED [None]
  - SKIN SWELLING [None]
  - URTICARIA [None]
